FAERS Safety Report 5904083-9 (Version None)
Quarter: 2008Q3

REPORT INFORMATION
  Report Type: 
  Country: None (occurrence: None)
  Receive Date: 20080919
  Receipt Date: 20080626
  Transmission Date: 20090109
  Serious: No
  Sender: FDA-Public Use
  Company Number: US-WYE-H04763908

PATIENT
  Age: 25 Year
  Sex: Male
  Weight: 108.96 kg

DRUGS (1)
  1. PRISTIQ [Suspect]
     Indication: ANXIETY
     Dosage: 50 MG 1X PER 1 DAY, ORAL
     Route: 048
     Dates: start: 20080625

REACTIONS (1)
  - NERVOUSNESS [None]
